FAERS Safety Report 5035125-3 (Version None)
Quarter: 2006Q2

REPORT INFORMATION
  Report Type: 
  Country: None (occurrence: None)
  Receive Date: 20060627
  Receipt Date: 20060125
  Transmission Date: 20061013
  Serious: Yes (Other)
  Sender: FDA-Public Use
  Company Number: PHNU2006DE00656

PATIENT
  Age: 62 Year
  Sex: Male
  Weight: 79 kg

DRUGS (5)
  1. TRENANTONE [Concomitant]
     Indication: PROSTATE CANCER METASTATIC
     Dosage: 1 DF, Q3MO
     Route: 058
     Dates: start: 20020101
  2. ENALAPRIL [Concomitant]
     Indication: HYPERTENSION
     Dosage: 5 MG, QD
     Route: 048
     Dates: start: 20030101
  3. ACETYLSALICYLIC ACID SRT [Concomitant]
     Indication: HYPERTENSION
     Dosage: 100 MG, QD
     Route: 048
     Dates: start: 20030101
  4. CASODEX [Concomitant]
     Indication: PROSTATE CANCER METASTATIC
     Dosage: 50 MG, QD
     Route: 048
     Dates: start: 20040101
  5. ZOMETA [Suspect]
     Indication: METASTASES TO BONE
     Dosage: 4 MG, QMO
     Route: 042
     Dates: start: 20020601, end: 20051101

REACTIONS (13)
  - DENTAL OPERATION [None]
  - EXCESSIVE GRANULATION TISSUE [None]
  - FISTULA [None]
  - INFLAMMATION [None]
  - ORAL SURGERY [None]
  - OSTEOMYELITIS [None]
  - OSTEONECROSIS [None]
  - PAIN IN JAW [None]
  - PROCEDURAL SITE REACTION [None]
  - PURULENT DISCHARGE [None]
  - SEQUESTRECTOMY [None]
  - WOUND DEBRIDEMENT [None]
  - X-RAY ABNORMAL [None]
